FAERS Safety Report 8640413 (Version 2)
Quarter: 2012Q4

REPORT INFORMATION
  Report Type: 
  Country: US (occurrence: US)
  Receive Date: 20120628
  Receipt Date: 20121008
  Transmission Date: 20130627
  Serious: Yes (Death)
  Sender: FDA-Public Use
  Company Number: US-PFIZER INC-2012152093

PATIENT
  Age: 75 Year
  Sex: Male

DRUGS (1)
  1. XALKORI [Suspect]
     Dosage: 200 mg, UNK
     Dates: start: 20110916

REACTIONS (4)
  - Disease progression [Fatal]
  - Neoplasm malignant [Fatal]
  - Skin disorder [Unknown]
  - Rash erythematous [Unknown]
